FAERS Safety Report 11970515 (Version 1)
Quarter: 2016Q1

REPORT INFORMATION
  Report Type: Spontaneous
  Country: CA (occurrence: None)
  Receive Date: 20160126
  Receipt Date: 20160126
  Transmission Date: 20160526
  Serious: Yes (Hospitalization)
  Sender: FDA-Public Use
  Company Number: None

PATIENT
  Age: 22 Year
  Sex: Female
  Weight: 55.5 kg

DRUGS (5)
  1. ONCASPAR [Suspect]
     Active Substance: PEGASPARGASE
     Dates: end: 20151223
  2. VINCRISTINE SULFATE. [Suspect]
     Active Substance: VINCRISTINE SULFATE
     Dates: end: 20151230
  3. METHOTREXATE [Suspect]
     Active Substance: METHOTREXATE
     Dates: end: 20151203
  4. DEXAMETHASONE. [Suspect]
     Active Substance: DEXAMETHASONE
     Dates: end: 20151227
  5. MITOXANTRONE HYDROCHLORIDE. [Suspect]
     Active Substance: MITOXANTRONE HYDROCHLORIDE
     Dates: end: 20151205

REACTIONS (18)
  - Confusional state [None]
  - Bacterial infection [None]
  - Cardiac failure [None]
  - Colitis [None]
  - Hepatic enzyme increased [None]
  - Candida infection [None]
  - Blood culture positive [None]
  - Ammonia increased [None]
  - Atrial fibrillation [None]
  - Clostridial infection [None]
  - Septic shock [None]
  - Gastrointestinal haemorrhage [None]
  - Citrobacter test positive [None]
  - Multiple organ dysfunction syndrome [None]
  - Delirium [None]
  - Disseminated intravascular coagulation [None]
  - International normalised ratio increased [None]
  - Electroencephalogram abnormal [None]

NARRATIVE: CASE EVENT DATE: 20160109
